FAERS Safety Report 21204400 (Version 1)
Quarter: 2022Q3

REPORT INFORMATION
  Report Type: Report from Study
  Country: RO (occurrence: RO)
  Receive Date: 20220812
  Receipt Date: 20220812
  Transmission Date: 20221027
  Serious: Yes (Hospitalization, Other)
  Sender: FDA-Public Use
  Company Number: RO-ABBVIE-22K-135-4500337-00

PATIENT
  Age: 63 Year
  Sex: Male

DRUGS (4)
  1. GLECAPREVIR\PIBRENTASVIR [Suspect]
     Active Substance: GLECAPREVIR\PIBRENTASVIR
     Indication: Chronic hepatitis C
     Dosage: 300MG/120MG
     Route: 048
     Dates: start: 20220408, end: 20220602
  2. INDAPAMIDE [Concomitant]
     Active Substance: INDAPAMIDE
     Indication: Hypertension
     Dosage: DRUG START DATE: PRIOR TO MAVIRET THERAPY
     Route: 048
  3. PERINDOPRIL [Concomitant]
     Active Substance: PERINDOPRIL
     Indication: Hypertension
     Dosage: DRUG START DATE: PRIOR TO MAVIRET THERAPY
     Route: 048
  4. OMERAN [Concomitant]
     Indication: Abdominal rigidity
     Dosage: DRUG START DATE: PRIOR TO MAVIRET THERAPY
     Route: 048

REACTIONS (1)
  - Inguinal hernia [Recovering/Resolving]

NARRATIVE: CASE EVENT DATE: 20220101
